FAERS Safety Report 10493118 (Version 1)
Quarter: 2014Q4

REPORT INFORMATION
  Report Type: Spontaneous
  Country: US (occurrence: US)
  Receive Date: 20141002
  Receipt Date: 20141002
  Transmission Date: 20150528
  Serious: No
  Sender: FDA-Public Use
  Company Number: US-GLAXOSMITHKLINE-A1079227A

PATIENT
  Age: 82 Year
  Sex: Female

DRUGS (5)
  1. EVISTA [Concomitant]
     Active Substance: RALOXIFENE HYDROCHLORIDE
  2. HCTZ [Concomitant]
     Active Substance: HYDROCHLOROTHIAZIDE
  3. VITAMINS [Concomitant]
     Active Substance: VITAMINS
  4. ADVAIR HFA [Suspect]
     Active Substance: FLUTICASONE PROPIONATE\SALMETEROL XINAFOATE
     Indication: RESPIRATORY DISORDER
     Dosage: 1MG TWICE PER DAY
     Route: 055
     Dates: start: 20140617
  5. PREDNISONE. [Suspect]
     Active Substance: PREDNISONE
     Indication: RESPIRATORY DISORDER
     Route: 048
     Dates: start: 20140619, end: 20140629

REACTIONS (4)
  - Overdose [Unknown]
  - Feeling jittery [Unknown]
  - Product quality issue [Unknown]
  - Medication error [Recovering/Resolving]

NARRATIVE: CASE EVENT DATE: 20140617
